FAERS Safety Report 4818764-1 (Version None)
Quarter: 2005Q4

REPORT INFORMATION
  Report Type: 
  Country: None (occurrence: None)
  Receive Date: 20051101
  Receipt Date: 20050913
  Transmission Date: 20060501
  Serious: Yes (Hospitalization)
  Sender: FDA-Public Use
  Company Number: 2005BH001668

PATIENT
  Age: 72 Year
  Sex: Female

DRUGS (6)
  1. CIPRO [Suspect]
     Indication: URINARY TRACT INFECTION
     Dosage: 400 MG; EVERY DAY; IV
     Route: 042
  2. AMLODIPINE [Concomitant]
  3. METOPROLOL [Concomitant]
  4. ROSIGLITAZONE [Concomitant]
  5. MIRTAZAPINE [Concomitant]
  6. INSULIN GLARGINE [Concomitant]

REACTIONS (1)
  - THROMBOCYTOPENIA [None]
